FAERS Safety Report 8436063-6 (Version None)
Quarter: 2012Q2

REPORT INFORMATION
  Report Type: 
  Country: None (occurrence: None)
  Receive Date: 20120614
  Receipt Date: 20111116
  Transmission Date: 20120825
  Serious: Yes (Other)
  Sender: FDA-Public Use
  Company Number: US-ASTRAZENECA-2011SE69892

PATIENT
  Age: 88 Year
  Sex: Male
  Weight: 90.7 kg

DRUGS (3)
  1. FINASTERIDE [Concomitant]
  2. ZOLADEX [Suspect]
     Route: 058
     Dates: start: 20110601
  3. ZOLADEX [Suspect]
     Indication: PROSTATE CANCER
     Route: 058

REACTIONS (1)
  - METASTASES TO BONE [None]
